FAERS Safety Report 7166899-3 (Version None)
Quarter: 2010Q4

REPORT INFORMATION
  Report Type: 
  Country: None (occurrence: None)
  Receive Date: 20101216
  Receipt Date: 20101207
  Transmission Date: 20110411
  Serious: Yes (Death, Hospitalization)
  Sender: FDA-Public Use
  Company Number: BR-SANOFI-AVENTIS-2010SA066010

PATIENT
  Age: 58 Year
  Sex: Female

DRUGS (7)
  1. CLOPIDOGREL BISULFATE [Suspect]
     Route: 048
     Dates: start: 20100101, end: 20100817
  2. CLOPIDOGREL BISULFATE [Suspect]
     Route: 048
     Dates: start: 20100101, end: 20100817
  3. CLOPIDOGREL BISULFATE [Suspect]
     Indication: CEREBRAL DISORDER
     Route: 048
     Dates: start: 20100101, end: 20100817
  4. HYDRALAZINE [Concomitant]
     Indication: HYPERTENSION
  5. ALL OTHER THERAPEUTIC PRODUCTS [Concomitant]
  6. ALL OTHER THERAPEUTIC PRODUCTS [Concomitant]
     Indication: ASTHMA
  7. CALCIUM/VITAMIN D [Concomitant]

REACTIONS (2)
  - OFF LABEL USE [None]
  - UNEVALUABLE EVENT [None]
